FAERS Safety Report 5850632-9 (Version None)
Quarter: 2008Q3

REPORT INFORMATION
  Report Type: 
  Country: None (occurrence: None)
  Receive Date: 20080818
  Receipt Date: 20080804
  Transmission Date: 20090109
  Serious: Yes (Hospitalization)
  Sender: FDA-Public Use
  Company Number: 2008US002087

PATIENT
  Age: 61 Year
  Sex: Male

DRUGS (4)
  1. PROGRAF [Suspect]
     Indication: RENAL TRANSPLANT
     Dosage: 6 MG, UID/QD, ORAL
     Route: 048
  2. ACETAMINOPHEN  MYCOPHENOLATE (MYCOPHENOLATE MOFETIL) [Concomitant]
  3. INSULIN (INSULIN) [Concomitant]
  4. CLONIDIN (CLONIDINE HYDROCHLORIDE) [Concomitant]

REACTIONS (1)
  - SPINAL OPERATION [None]
